FAERS Safety Report 5588422-7 (Version None)
Quarter: 2007Q4

REPORT INFORMATION
  Report Type: 
  Country: None (occurrence: None)
  Receive Date: 20071211
  Receipt Date: 20071016
  Transmission Date: 20080405
  Serious: No
  Sender: FDA-Public Use
  Company Number: 002#2#2007-00244

PATIENT
  Age: 65 Year
  Sex: Female
  Weight: 59 kg

DRUGS (4)
  1. NEUPRO [Suspect]
     Indication: PARKINSON'S DISEASE
     Dosage: 2MG/24H,1 IN 1 D,TRANSDERMAL ; 8MG/24H,1 IN 1 D,TRANSDERMAL
     Route: 062
     Dates: start: 20070927, end: 20071004
  2. NEUPRO [Suspect]
     Indication: PARKINSON'S DISEASE
     Dosage: 2MG/24H,1 IN 1 D,TRANSDERMAL ; 8MG/24H,1 IN 1 D,TRANSDERMAL
     Route: 062
     Dates: start: 20071005
  3. REQUIP [Concomitant]
  4. FEMHRT [Concomitant]

REACTIONS (3)
  - APPLICATION SITE RASH [None]
  - DRUG INEFFECTIVE [None]
  - SOMNOLENCE [None]
